FAERS Safety Report 16084135 (Version 1)
Quarter: 2019Q1

REPORT INFORMATION
  Report Type: Spontaneous
  Country: US (occurrence: US)
  Receive Date: 20190318
  Receipt Date: 20190318
  Transmission Date: 20190418
  Serious: No
  Sender: FDA-Public Use
  Company Number: US-PFIZER INC-2019100928

PATIENT
  Age: 73 Year
  Sex: Female
  Weight: 55.34 kg

DRUGS (5)
  1. VFEND [Suspect]
     Active Substance: VORICONAZOLE
     Indication: ANTIFUNGAL TREATMENT
     Dosage: 150 MG, 2X/DAY
     Route: 048
  2. VFEND [Suspect]
     Active Substance: VORICONAZOLE
     Dosage: 350 MG, 2X/DAY ( 3 TABLETS BY MOUTH TWICE A DAY. COMBINE WITH 200 MG TABLETS, DAILY DOSE: 350)
     Route: 048
     Dates: start: 20190307
  3. VFEND [Suspect]
     Active Substance: VORICONAZOLE
     Dosage: 200 MG, 2X/DAY
     Route: 048
  4. VFEND [Suspect]
     Active Substance: VORICONAZOLE
     Indication: SINUSITIS ASPERGILLUS
     Dosage: 50 MG, 2X/DAY
     Route: 048
     Dates: start: 201812
  5. VFEND [Suspect]
     Active Substance: VORICONAZOLE
     Dosage: 350 MG, 2X/DAY  [200 MG ORAL ,COMBINE WITH 50 MG TABLET FOR TOTAL DOSE 350 MG BY MOUTH TWICE A DAY]
     Route: 048
     Dates: start: 20190305

REACTIONS (3)
  - Prescribed overdose [Unknown]
  - Wrong technique in product usage process [Unknown]
  - Drug level decreased [Unknown]

NARRATIVE: CASE EVENT DATE: 20190302
